FAERS Safety Report 6168537-5 (Version None)
Quarter: 2009Q2

REPORT INFORMATION
  Report Type: 
  Country: None (occurrence: None)
  Receive Date: 20090427
  Receipt Date: 20090423
  Transmission Date: 20091009
  Serious: Yes (Other)
  Sender: FDA-Public Use
  Company Number: B0571343A

PATIENT
  Age: 48 Year
  Sex: Male

DRUGS (3)
  1. AVANDAMET [Suspect]
  2. GLICLAZIDE [Concomitant]
  3. COMPETACT [Concomitant]

REACTIONS (2)
  - DIABETES MELLITUS INADEQUATE CONTROL [None]
  - MYOCARDIAL ISCHAEMIA [None]
